FAERS Safety Report 7454504-8 (Version None)
Quarter: 2011Q2

REPORT INFORMATION
  Report Type: 
  Country: None (occurrence: None)
  Receive Date: 20110503
  Receipt Date: 20110420
  Transmission Date: 20111010
  Serious: Yes (Hospitalization)
  Sender: FDA-Public Use
  Company Number: PHHY2011PT34480

PATIENT
  Sex: Female

DRUGS (1)
  1. ACLASTA [Suspect]
     Indication: OSTEOPOROSIS
     Dosage: 5 MG
     Route: 042
     Dates: start: 20110419

REACTIONS (6)
  - DIARRHOEA [None]
  - BONE PAIN [None]
  - VASODILATATION [None]
  - FEELING ABNORMAL [None]
  - TREMOR [None]
  - FEELING HOT [None]
